FAERS Safety Report 6086317-6 (Version None)
Quarter: 2009Q1

REPORT INFORMATION
  Report Type: 
  Country: None (occurrence: None)
  Receive Date: 20090220
  Receipt Date: 20090216
  Transmission Date: 20090719
  Serious: Yes (Hospitalization)
  Sender: FDA-Public Use
  Company Number: BR-ROXANE LABORATORIES, INC.-2009-RO-00151RO

PATIENT
  Age: 24 Year
  Sex: Male

DRUGS (5)
  1. PREDNISONE TAB [Suspect]
     Indication: IMMUNOSUPPRESSION
  2. TACROLIMUS [Suspect]
     Indication: IMMUNOSUPPRESSION
  3. RAPAMICINE [Suspect]
     Indication: IMMUNOSUPPRESSION
  4. VORICONAZOLE [Concomitant]
     Indication: BRONCHOPULMONARY ASPERGILLOSIS
     Dosage: 400MG
     Route: 048
  5. EMPIRICAL TREATMENT FOR TUBERCULOSIS [Concomitant]
     Indication: EVIDENCE BASED TREATMENT

REACTIONS (1)
  - BRONCHOPULMONARY ASPERGILLOSIS [None]
